FAERS Safety Report 7901509-6 (Version None)
Quarter: 2011Q4

REPORT INFORMATION
  Report Type: 
  Country: None (occurrence: None)
  Receive Date: 20111108
  Receipt Date: 20110919
  Transmission Date: 20120403
  Serious: No
  Sender: FDA-Public Use
  Company Number: US-MYLANLABS-2011S1019758

PATIENT
  Age: 80 Year
  Sex: Male
  Weight: 65.77 kg

DRUGS (3)
  1. ALFUZOSIN HYDROCHLORIDE [Suspect]
     Indication: BENIGN PROSTATIC HYPERPLASIA
     Route: 048
     Dates: start: 20110816
  2. DIOVAN [Concomitant]
     Indication: BLOOD PRESSURE INCREASED
  3. LIPITOR [Concomitant]

REACTIONS (2)
  - DRUG EFFECT DECREASED [None]
  - URINARY RETENTION [None]
